FAERS Safety Report 8695088 (Version 3)
Quarter: 2013Q4

REPORT INFORMATION
  Report Type: Spontaneous
  Country: US (occurrence: US)
  Receive Date: 20120731
  Receipt Date: 20131107
  Transmission Date: 20140711
  Serious: Yes (Disabling, Other)
  Sender: FDA-Public Use
  Company Number: US-009507513-1207USA009796

PATIENT
  Age: 48 Year
  Sex: Female

DRUGS (20)
  1. ZOCOR [Suspect]
     Route: 048
  2. TYLENOL WITH CODEINE #3 [Suspect]
  3. ZANTAC [Suspect]
  4. LOMOTIL [Suspect]
     Route: 048
  5. METHOCARBAMOL [Suspect]
     Route: 048
  6. ISOSORBIDE MONONITRATE [Suspect]
  7. POTASSIUM CHLORIDE [Suspect]
  8. DEPAKOTE [Suspect]
     Route: 048
  9. HUMULIN R [Suspect]
  10. FUROSEMIDE [Suspect]
     Route: 048
  11. LANTUS [Suspect]
     Dosage: 80 IU, QAM
  12. LANTUS [Suspect]
     Dosage: 90 DF, QPM
  13. GENERLAC [Suspect]
  14. REMERON [Suspect]
     Route: 048
  15. NITROSTAT [Suspect]
  16. ATENOLOL [Suspect]
     Route: 048
  17. ATIVAN [Suspect]
     Route: 048
  18. NORVASC [Suspect]
     Route: 048
  19. DILANTIN [Suspect]
     Route: 048
  20. ASPIRIN [Suspect]

REACTIONS (4)
  - Chronic obstructive pulmonary disease [Unknown]
  - Amnesia [Unknown]
  - Bedridden [Unknown]
  - Emphysema [Unknown]
